FAERS Safety Report 24113505 (Version 2)
Quarter: 2024Q3

REPORT INFORMATION
  Report Type: Spontaneous
  Country: FR (occurrence: FR)
  Receive Date: 20240720
  Receipt Date: 20240807
  Transmission Date: 20241017
  Serious: Yes (Other)
  Sender: NOVARTIS
  Company Number: FR-002147023-NVSC2024FR147689

PATIENT
  Age: 86 Year
  Sex: Female
  Weight: 61 kg

DRUGS (3)
  1. BEOVU [Suspect]
     Active Substance: BROLUCIZUMAB-DBLL
     Indication: Age-related macular degeneration
     Dosage: UNK (6 MG/0.05 ML) (ONE INJECTION EVERY 10 WEEKS (OFF-LABEL), BOTH EYES)
     Route: 031
     Dates: start: 20240221
  2. BEOVU [Suspect]
     Active Substance: BROLUCIZUMAB-DBLL
     Dosage: UNK (BOTH EYES)
     Route: 031
     Dates: start: 20240416
  3. BEOVU [Suspect]
     Active Substance: BROLUCIZUMAB-DBLL
     Dosage: UNK (BOTH EYES)
     Route: 031
     Dates: start: 20240625

REACTIONS (4)
  - Uveitis [Recovered/Resolved]
  - Visual acuity reduced [Recovered/Resolved]
  - Visual impairment [Recovered/Resolved]
  - Off label use [Unknown]
